FAERS Safety Report 10067483 (Version 1)
Quarter: 2014Q2

REPORT INFORMATION
  Report Type: Report from Study
  Country: CA (occurrence: CA)
  Receive Date: 20140409
  Receipt Date: 20140409
  Transmission Date: 20141212
  Serious: Yes (Hospitalization)
  Sender: FDA-Public Use
  Company Number: CA-JNJFOC-20140402675

PATIENT
  Age: 14 Year
  Sex: Female
  Weight: 38 kg

DRUGS (2)
  1. REMICADE [Suspect]
     Indication: CROHN^S DISEASE
     Route: 042
     Dates: start: 20120228
  2. SOLU CORTEF [Concomitant]
     Indication: PREMEDICATION
     Route: 065

REACTIONS (3)
  - Aphagia [Recovering/Resolving]
  - Weight decreased [Recovered/Resolved]
  - Diarrhoea [Recovering/Resolving]
